FAERS Safety Report 20746099 (Version 2)
Quarter: 2022Q2

REPORT INFORMATION
  Report Type: Spontaneous
  Country: PL (occurrence: PL)
  Receive Date: 20220425
  Receipt Date: 20220504
  Transmission Date: 20220721
  Serious: Yes (Other)
  Sender: FDA-Public Use
  Company Number: PL-MLMSERVICE-20220412-3496955-2

PATIENT
  Age: 3 Year
  Sex: Male

DRUGS (11)
  1. BORTEZOMIB [Suspect]
     Active Substance: BORTEZOMIB
     Indication: Disease progression
     Dosage: 1.3 MG/M2, 1X/DAY
  2. BORTEZOMIB [Suspect]
     Active Substance: BORTEZOMIB
     Indication: Precursor T-lymphoblastic lymphoma/leukaemia stage IV
  3. VINCRISTINE SULFATE [Suspect]
     Active Substance: VINCRISTINE SULFATE
     Indication: Disease progression
     Dosage: 1.5 MG/M2
  4. VINCRISTINE SULFATE [Suspect]
     Active Substance: VINCRISTINE SULFATE
     Indication: Precursor T-lymphoblastic lymphoma/leukaemia stage IV
  5. PEGASPARGASE [Suspect]
     Active Substance: PEGASPARGASE
     Indication: Disease progression
     Dosage: 1000 U/M2
  6. PEGASPARGASE [Suspect]
     Active Substance: PEGASPARGASE
     Indication: Precursor T-lymphoblastic lymphoma/leukaemia stage IV
  7. MITOXANTRONE [Suspect]
     Active Substance: MITOXANTRONE HYDROCHLORIDE
     Indication: Disease progression
     Dosage: 10 MG/M2
  8. MITOXANTRONE [Suspect]
     Active Substance: MITOXANTRONE HYDROCHLORIDE
     Indication: Precursor T-lymphoblastic lymphoma/leukaemia stage IV
  9. DEXAMETHASONE [Suspect]
     Active Substance: DEXAMETHASONE
     Indication: Disease progression
     Dosage: 20 MG/M2, 1X/DAY
  10. DEXAMETHASONE [Suspect]
     Active Substance: DEXAMETHASONE
     Indication: Precursor T-lymphoblastic lymphoma/leukaemia stage IV
  11. IMMUNOGLOBULIN 5 TRCS [Concomitant]
     Dosage: 0.4 G/KG BODY WEIGHT PER MONTH
     Route: 042

REACTIONS (2)
  - Seizure [Unknown]
  - Off label use [Unknown]
